FAERS Safety Report 24564887 (Version 5)
Quarter: 2025Q1

REPORT INFORMATION
  Report Type: Spontaneous
  Country: US (occurrence: US)
  Receive Date: 20241030
  Receipt Date: 20250120
  Transmission Date: 20250408
  Serious: Yes (Other)
  Sender: PFIZER
  Company Number: US-PFIZER INC-202400290059

PATIENT
  Age: 76 Year
  Sex: Female

DRUGS (1)
  1. XELJANZ XR [Suspect]
     Active Substance: TOFACITINIB CITRATE

REACTIONS (5)
  - Cerebrovascular accident [Unknown]
  - Amnesia [Unknown]
  - Memory impairment [Unknown]
  - Dementia [Unknown]
  - Mutism [Unknown]

NARRATIVE: CASE EVENT DATE: 20220101
